FAERS Safety Report 4823619-2 (Version None)
Quarter: 2005Q4

REPORT INFORMATION
  Report Type: 
  Country: None (occurrence: None)
  Receive Date: 20051107
  Receipt Date: 20051026
  Transmission Date: 20060501
  Serious: Yes (Hospitalization)
  Sender: FDA-Public Use
  Company Number: 2005BI004537

PATIENT
  Sex: Female

DRUGS (1)
  1. AVONEX [Suspect]
     Indication: MULTIPLE SCLEROSIS
     Dosage: 30 UG;QW; IM
     Route: 030

REACTIONS (4)
  - COGNITIVE DISORDER [None]
  - CORONARY ARTERY SURGERY [None]
  - DEPRESSION POSTOPERATIVE [None]
  - VASCULAR BYPASS GRAFT [None]
